FAERS Safety Report 7073272-5 (Version None)
Quarter: 2010Q4

REPORT INFORMATION
  Report Type: 
  Country: None (occurrence: None)
  Receive Date: 20101029
  Receipt Date: 20100615
  Transmission Date: 20110411
  Serious: No
  Sender: FDA-Public Use
  Company Number: A0860433A

PATIENT
  Age: 58 Year
  Sex: Female

DRUGS (2)
  1. ADVAIR DISKUS 100/50 [Suspect]
     Indication: ASTHMA
     Route: 055
     Dates: start: 20100512, end: 20100512
  2. XANAX [Concomitant]

REACTIONS (6)
  - DYSGEUSIA [None]
  - DYSKINESIA [None]
  - HAEMOPTYSIS [None]
  - MOUTH HAEMORRHAGE [None]
  - ORAL PAIN [None]
  - TOOTHACHE [None]
